FAERS Safety Report 9117297 (Version 1)
Quarter: 2013Q1

REPORT INFORMATION
  Report Type: Report from Study
  Country: CA (occurrence: CA)
  Receive Date: 20130225
  Receipt Date: 20130225
  Transmission Date: 20140127
  Serious: Yes (Other)
  Sender: FDA-Public Use
  Company Number: CA-JNJFOC-20130208990

PATIENT
  Sex: Male
  Weight: 59.8 kg

DRUGS (7)
  1. REMICADE [Suspect]
     Indication: CROHN^S DISEASE
     Dosage: 75 INFUSIONS TILL DATE
     Route: 042
  2. SALOFALK [Concomitant]
     Route: 065
  3. PENTASA [Concomitant]
     Route: 065
  4. ACTONEL [Concomitant]
     Route: 065
  5. PHOSPHATES [Concomitant]
     Route: 065
  6. PANTOLOC [Concomitant]
     Route: 065
  7. FERROUS GLUCONATE [Concomitant]
     Route: 065

REACTIONS (2)
  - Skin lesion [Unknown]
  - Impaired healing [Unknown]
